FAERS Safety Report 21569706 (Version 1)
Quarter: 2022Q4

REPORT INFORMATION
  Report Type: Spontaneous
  Country: CN (occurrence: CN)
  Receive Date: 20221109
  Receipt Date: 20221109
  Transmission Date: 20230113
  Serious: Yes (Hospitalization)
  Sender: FDA-Public Use
  Company Number: CN-CELGENE-CHN-20191202475

PATIENT
  Age: 53 Year
  Sex: Male
  Weight: 70 kg

DRUGS (17)
  1. ABRAXANE [Suspect]
     Active Substance: PACLITAXEL
     Indication: Non-small cell lung cancer
     Dosage: 181 MILLIGRAM
     Route: 042
     Dates: start: 20191115
  2. CARBOPLATIN [Suspect]
     Active Substance: CARBOPLATIN
     Indication: Non-small cell lung cancer
     Dosage: 750 MILLIGRAM
     Route: 042
     Dates: start: 20191115
  3. SERPLULIMAB [Concomitant]
     Active Substance: SERPLULIMAB
     Indication: Non-small cell lung cancer
     Dosage: 315 MILLIGRAM
     Route: 042
     Dates: start: 20191115
  4. SERPLULIMAB [Concomitant]
     Active Substance: SERPLULIMAB
  5. OXYCODONE HYDROCHLORIDE [Concomitant]
     Active Substance: OXYCODONE HYDROCHLORIDE
     Indication: Chest pain
     Dosage: DAILY DOSE : 2 TABLET?TOTAL DOSE : 36 TABLET?UNIT DOSE : 1 TABLET?2 TABLET
     Route: 048
     Dates: start: 20191114, end: 20191202
  6. OXYCODONE HYDROCHLORIDE [Concomitant]
     Active Substance: OXYCODONE HYDROCHLORIDE
     Route: 048
     Dates: start: 20200223
  7. ACETAMINOPHEN\TRAMADOL HYDROCHLORIDE [Concomitant]
     Active Substance: ACETAMINOPHEN\TRAMADOL HYDROCHLORIDE
     Indication: Chest pain
     Dosage: UNIT DOSE : 1 TABLET?FREQUENCY TEXT: PRN
     Route: 048
     Dates: start: 20190822
  8. INSULIN GLARGINE [Concomitant]
     Active Substance: INSULIN GLARGINE
     Indication: Type 2 diabetes mellitus
     Dosage: 8-10 IU
     Route: 058
     Dates: start: 2015
  9. METFORMIN HYDROCHLORIDE [Concomitant]
     Active Substance: METFORMIN HYDROCHLORIDE
     Indication: Type 2 diabetes mellitus
     Dosage: DAILY DOSE : 4 TABLET?UNIT DOSE : 2 TABLET?4 TABLET
     Route: 048
     Dates: start: 2009
  10. REPAGLINIDE [Concomitant]
     Active Substance: REPAGLINIDE
     Indication: Type 2 diabetes mellitus
     Dosage: DAILY DOSE : 4 TABLET?UNIT DOSE : 2 TABLET?4 TABLET
     Route: 048
     Dates: start: 2015
  11. ENTECAVIR [Concomitant]
     Active Substance: ENTECAVIR
     Indication: Chronic hepatitis
     Route: 048
     Dates: start: 20200223
  12. AMINOMETHYLBENZOIC ACID [Concomitant]
     Active Substance: AMINOMETHYLBENZOIC ACID
     Indication: Product used for unknown indication
     Dosage: FREQUENCY TEXT: GTT
     Route: 042
     Dates: start: 20200321
  13. VITAMIN K1 [Concomitant]
     Active Substance: PHYTONADIONE
     Indication: Product used for unknown indication
     Dosage: FREQUENCY TEXT: GTT
     Route: 042
     Dates: start: 20200321
  14. LEVOFLOXACIN HYDROCHLORIDE [Concomitant]
     Active Substance: LEVOFLOXACIN HYDROCHLORIDE
     Indication: Product used for unknown indication
     Dosage: FREQUENCY TEXT: GTT
     Route: 042
     Dates: start: 20200321
  15. CLINDAMYCIN HYDROCHLORIDE [Concomitant]
     Active Substance: CLINDAMYCIN HYDROCHLORIDE
     Indication: Product used for unknown indication
     Dosage: FREQUENCY TEXT: GTT
     Route: 042
     Dates: start: 20200321
  16. OXYGEN [Concomitant]
     Active Substance: OXYGEN
     Indication: Product used for unknown indication
     Dosage: FREQUENCY TEXT: NOT PROVIDED?FOR 5 HOURS
     Route: 055
     Dates: start: 20200321
  17. Leukocyte erythrocyte [Concomitant]
     Indication: Anaemia
     Dosage: FREQUENCY TEXT: NOT PROVIDED
     Route: 065
     Dates: start: 20200322

REACTIONS (1)
  - Haemoptysis [Recovered/Resolved]

NARRATIVE: CASE EVENT DATE: 20191130
